FAERS Safety Report 22846800 (Version 3)
Quarter: 2023Q4

REPORT INFORMATION
  Report Type: Spontaneous
  Country: CN (occurrence: CN)
  Receive Date: 20230822
  Receipt Date: 20231030
  Transmission Date: 20240110
  Serious: Yes (Hospitalization, Disabling, Other)
  Sender: FDA-Public Use
  Company Number: CN-NOVOPROD-1103744

PATIENT
  Age: 60 Year
  Sex: Male
  Weight: 85 kg

DRUGS (2)
  1. INSULIN HUMAN [Suspect]
     Active Substance: INSULIN HUMAN
     Indication: Type 2 diabetes mellitus
     Dosage: 39 IU, QD (12 U IN THE MORNING, 15 U AT NOON AND 12 U IN THE EVENING)
     Route: 058
  2. INSULIN GLARGINE [Concomitant]
     Active Substance: INSULIN GLARGINE
     Indication: Type 2 diabetes mellitus
     Dosage: 20 IU, QD (BEFORE SLEEP)

REACTIONS (4)
  - Contusion [Unknown]
  - Localised infection [Unknown]
  - Device malfunction [Unknown]
  - Device breakage [Unknown]
